FAERS Safety Report 13012763 (Version 2)
Quarter: 2017Q1

REPORT INFORMATION
  Report Type: Report from Study
  Country: CA (occurrence: CA)
  Receive Date: 20161209
  Receipt Date: 20170224
  Transmission Date: 20170428
  Serious: Yes (Hospitalization, Other)
  Sender: FDA-Public Use
  Company Number: PHHY2016CA167129

PATIENT
  Sex: Male

DRUGS (1)
  1. EXJADE [Suspect]
     Active Substance: DEFERASIROX
     Indication: MYELOFIBROSIS
     Dosage: 2 DF, QD
     Route: 048
     Dates: start: 201611

REACTIONS (10)
  - Serum ferritin increased [Unknown]
  - Weight decreased [Unknown]
  - Infection [Recovered/Resolved]
  - Pyrexia [Unknown]
  - Blood iron increased [Unknown]
  - Retching [Unknown]
  - Nephrolithiasis [Unknown]
  - Haemoglobin decreased [Recovering/Resolving]
  - Blood creatinine abnormal [Unknown]
  - Headache [Unknown]
